FAERS Safety Report 9114145 (Version 1)
Quarter: 2013Q1

REPORT INFORMATION
  Report Type: Spontaneous
  Country: US (occurrence: US)
  Receive Date: 20130208
  Receipt Date: 20130208
  Transmission Date: 20140127
  Serious: Yes (Death)
  Sender: FDA-Public Use
  Company Number: CHPA2013US002386

PATIENT
  Age: 45 Year
  Sex: Female

DRUGS (4)
  1. ACETAMINOPHEN (PARACETAMOL) [Suspect]
     Dosage: UNK, UNK
  2. COCAINE [Suspect]
     Dosage: UNK, UNK
  3. OXYCODONE [Suspect]
     Dosage: UNK, UNK
  4. FENTANYL [Suspect]
     Dosage: UNK, UNK

REACTIONS (1)
  - Intentional drug misuse [Fatal]
